FAERS Safety Report 21214667 (Version 1)
Quarter: 2022Q3

REPORT INFORMATION
  Report Type: Spontaneous
  Country: FR (occurrence: FR)
  Receive Date: 20220816
  Receipt Date: 20220816
  Transmission Date: 20221027
  Serious: Yes (Hospitalization)
  Sender: FDA-Public Use
  Company Number: None

PATIENT
  Age: 61 Year
  Sex: Male
  Weight: 75 kg

DRUGS (6)
  1. FILGRASTIM [Suspect]
     Active Substance: FILGRASTIM
     Indication: Agranulocytosis
     Dosage: FILGRASTIM (BACTERIA/ESCHERICHIA COLI), THERAPY END DATE: NASK
     Dates: start: 20200412
  2. ACETYLCYSTEINE [Concomitant]
     Active Substance: ACETYLCYSTEINE
     Indication: Product used for unknown indication
     Dosage: FREQUENCY TIME : 1 DAY, UNIT DOSE: 2 DF
  3. ESCITALOPRAM OXALATE [Concomitant]
     Active Substance: ESCITALOPRAM OXALATE
     Indication: Product used for unknown indication
     Dosage: FORM STRENGTH : 5 MG, FREQUENCY TIME : 1 DAY, UNIT DOSE: 5 MG
  4. SACCHAROMYCES CEREVISIAE\SODIUM SULFATE [Concomitant]
     Active Substance: SACCHAROMYCES CEREVISIAE\SODIUM SULFATE
     Indication: Product used for unknown indication
     Dosage: SOLUTION FOR NASAL AND ORAL SPRAYING IN A PRESSURIZED BOTTLE, FREQUENCY TIME: 1 DAY, UNIT DOSE: 3 DF
  5. SILODOSIN [Concomitant]
     Active Substance: SILODOSIN
     Indication: Product used for unknown indication
     Dosage: FORM STRENGTH : 8 MG, FREQUENCY TIME : 1 DAY, UNIT DOSE: 8 MG
  6. CEFOTAXIME SODIUM [Concomitant]
     Active Substance: CEFOTAXIME SODIUM
     Indication: Product used for unknown indication
     Dosage: DURATION: 7 DAYS
     Dates: start: 20200411, end: 20200417

REACTIONS (1)
  - Vasculitis necrotising [Recovering/Resolving]

NARRATIVE: CASE EVENT DATE: 20200416
